FAERS Safety Report 14291247 (Version 2)
Quarter: 2018Q1

REPORT INFORMATION
  Report Type: Spontaneous
  Country: US (occurrence: US)
  Receive Date: 20171215
  Receipt Date: 20180308
  Transmission Date: 20180509
  Serious: Yes (Hospitalization, Other)
  Sender: FDA-Public Use
  Company Number: US-PFIZER INC-2017531934

PATIENT
  Sex: Female

DRUGS (4)
  1. MECLIZINE [Concomitant]
     Active Substance: MECLIZINE HYDROCHLORIDE
     Dosage: UNK
  2. XANAX [Suspect]
     Active Substance: ALPRAZOLAM
     Indication: MENIERE^S DISEASE
     Dosage: 2 MG, 1X/DAY
  3. XANAX [Suspect]
     Active Substance: ALPRAZOLAM
     Dosage: 2 MG, DAILY
  4. XANAX [Suspect]
     Active Substance: ALPRAZOLAM
     Dosage: UNK, (ONE COAT OF THAT IN THE MORNING AND I WOULD TAKE REST OF IT IN EVENING)

REACTIONS (8)
  - Tinnitus [Not Recovered/Not Resolved]
  - Ear congestion [Recovered/Resolved]
  - Insomnia [Not Recovered/Not Resolved]
  - Drug ineffective for unapproved indication [Recovered/Resolved]
  - Deafness [Not Recovered/Not Resolved]
  - Fatigue [Not Recovered/Not Resolved]
  - Feeling abnormal [Unknown]
  - Paraesthesia [Recovered/Resolved]
